FAERS Safety Report 21968511 (Version 2)
Quarter: 2023Q1

REPORT INFORMATION
  Report Type: Spontaneous
  Country: DE (occurrence: DE)
  Receive Date: 20230208
  Receipt Date: 20230224
  Transmission Date: 20230417
  Serious: Yes (Hospitalization)
  Sender: FDA-Public Use
  Company Number: DE-STADA-268077

PATIENT
  Age: 15 Year

DRUGS (2)
  1. RISPERDAL [Interacting]
     Active Substance: RISPERIDONE
     Indication: Adjustment disorder
     Route: 065
  2. MELPERONE [Interacting]
     Active Substance: MELPERONE
     Indication: Adjustment disorder
     Route: 065

REACTIONS (11)
  - Off label use [Unknown]
  - Drug interaction [Unknown]
  - Extrapyramidal disorder [Unknown]
  - Akinesia [Unknown]
  - Gait disturbance [Unknown]
  - Tremor [Unknown]
  - Myoclonus [Unknown]
  - Muscle spasms [Unknown]
  - Chills [Unknown]
  - Akathisia [Unknown]
  - Tongue spasm [Unknown]
